FAERS Safety Report 15676608 (Version 1)
Quarter: 2018Q4

REPORT INFORMATION
  Report Type: Report from Study
  Country: US (occurrence: US)
  Receive Date: 20181130
  Receipt Date: 20181130
  Transmission Date: 20190205
  Serious: Yes (Hospitalization)
  Sender: FDA-Public Use
  Company Number: US-EMD SERONO-9056170

PATIENT
  Age: 55 Year
  Sex: Female
  Weight: 78 kg

DRUGS (2)
  1. PT-112 [Suspect]
     Active Substance: INVESTIGATIONAL PRODUCT
     Indication: BREAST CANCER
     Dosage: 250 MG/M2 (D1,D8,D15)
     Route: 042
     Dates: start: 20181113, end: 20181113
  2. AVELUMAB [Suspect]
     Active Substance: AVELUMAB
     Indication: BREAST CANCER
     Dosage: 800MG, D1, D15
     Route: 042
     Dates: start: 20181113, end: 20181113

REACTIONS (1)
  - Pleural effusion [Unknown]

NARRATIVE: CASE EVENT DATE: 20181114
